FAERS Safety Report 18969620 (Version 2)
Quarter: 2021Q2

REPORT INFORMATION
  Report Type: Spontaneous
  Country: CA (occurrence: CA)
  Receive Date: 20210304
  Receipt Date: 20210414
  Transmission Date: 20210717
  Serious: Yes (Other)
  Sender: FDA-Public Use
  Company Number: CA-B.I. PHARMACEUTICALS,INC./RIDGEFIELD-2021-BI-086434

PATIENT
  Sex: Male

DRUGS (8)
  1. BUDESONIDE;FORMOTEROL FUMARATE [Suspect]
     Active Substance: BUDESONIDE\FORMOTEROL FUMARATE
     Indication: ASTHMA
     Dosage: DOSE: 2 DOSAGE FORMS
     Route: 055
  2. PREDNISONE. [Concomitant]
     Active Substance: PREDNISONE
     Route: 065
  3. VENTOLIN [Suspect]
     Active Substance: ALBUTEROL SULFATE
     Indication: ASTHMA
     Route: 065
  4. PREDNISONE. [Concomitant]
     Active Substance: PREDNISONE
     Indication: ASTHMA
     Route: 065
  5. FORMOTEROL;MOMETASONE [Suspect]
     Active Substance: FORMOTEROL\MOMETASONE
     Indication: PRODUCT USED FOR UNKNOWN INDICATION
     Dosage: 1 DOSAGE FORM.
  6. MEPOLIZUMAB [Suspect]
     Active Substance: MEPOLIZUMAB
     Indication: ASTHMA
     Route: 042
  7. SPIRIVA [Suspect]
     Active Substance: TIOTROPIUM BROMIDE MONOHYDRATE
     Indication: ASTHMA
     Dosage: DOSE: 2 DOSAGE FORMS
     Route: 055
  8. PULMICORT TURBUHALER [Suspect]
     Active Substance: BUDESONIDE
     Indication: ASTHMA
     Dosage: DOSE: 1 DOSAGE FORMS
     Route: 055

REACTIONS (2)
  - Asthma [Unknown]
  - Therapeutic product effect incomplete [Unknown]
